FAERS Safety Report 8169454-1 (Version None)
Quarter: 2012Q1

REPORT INFORMATION
  Report Type: 
  Country: None (occurrence: None)
  Receive Date: 20120222
  Receipt Date: 20120207
  Transmission Date: 20120608
  Serious: Yes (Death, Hospitalization)
  Sender: FDA-Public Use
  Company Number: FK201200377

PATIENT
  Age: 73 Year
  Sex: Male

DRUGS (3)
  1. OXALIPLATIN [Suspect]
     Indication: COLON CANCER
  2. LEUCOVORINE (LEUCOVORINE)(LEUCOVORINE) [Concomitant]
  3. FLUOROURACIL [Concomitant]

REACTIONS (6)
  - PYREXIA [None]
  - LEUKOCYTOSIS [None]
  - RESPIRATORY FAILURE [None]
  - DYSPNOEA [None]
  - CREPITATIONS [None]
  - PULMONARY FIBROSIS [None]
